FAERS Safety Report 5187573-9 (Version None)
Quarter: 2006Q4

REPORT INFORMATION
  Report Type: 
  Country: None (occurrence: None)
  Receive Date: 20061220
  Receipt Date: 20051221
  Transmission Date: 20070319
  Serious: No
  Sender: FDA-Public Use
  Company Number: US-AMGEN-US162431

PATIENT

DRUGS (4)
  1. ENBREL [Suspect]
     Indication: DRUG USE FOR UNKNOWN INDICATION
     Route: 058
     Dates: start: 20050601
  2. PAXIL [Concomitant]
  3. ZOCOR [Concomitant]
  4. DURAGESIC-100 [Concomitant]

REACTIONS (1)
  - CONTUSION [None]
